FAERS Safety Report 4765135-2 (Version None)
Quarter: 2005Q3

REPORT INFORMATION
  Report Type: 
  Country: None (occurrence: None)
  Receive Date: 20050906
  Receipt Date: 20050824
  Transmission Date: 20060218
  Serious: Yes (Hospitalization, Other)
  Sender: FDA-Public Use
  Company Number: US_0508120602

PATIENT
  Age: 76 Year
  Sex: Female

DRUGS (2)
  1. FORTEO [Suspect]
     Dosage: 20 UG DAY
     Dates: start: 20050401
  2. CEFTRIAXONE [Concomitant]

REACTIONS (8)
  - CONFUSIONAL STATE [None]
  - DYSPNOEA EXERTIONAL [None]
  - FLUSHING [None]
  - INCORRECT DOSE ADMINISTERED [None]
  - OVERDOSE [None]
  - PHARMACEUTICAL PRODUCT COMPLAINT [None]
  - RASH [None]
  - WRONG TECHNIQUE IN DRUG USAGE PROCESS [None]
